FAERS Safety Report 4578982-7 (Version None)
Quarter: 2005Q1

REPORT INFORMATION
  Report Type: 
  Country: None (occurrence: None)
  Receive Date: 20050118
  Receipt Date: 20040115
  Transmission Date: 20050727
  Serious: Yes (Hospitalization)
  Sender: FDA-Public Use
  Company Number: 356298

PATIENT
  Age: 5 Month
  Sex: Male

DRUGS (1)
  1. ROCEPHIN [Suspect]
     Indication: INFECTION
     Dosage: 300 MG   2 PER DAY  INTRAVENOUS
     Route: 042
     Dates: start: 20040106, end: 20040111

REACTIONS (1)
  - THROMBOCYTHAEMIA [None]
